FAERS Safety Report 21853851 (Version 1)
Quarter: 2023Q1

REPORT INFORMATION
  Report Type: Spontaneous
  Country: IL (occurrence: IL)
  Receive Date: 20230112
  Receipt Date: 20230112
  Transmission Date: 20230418
  Serious: Yes (Other)
  Sender: FDA-Public Use
  Company Number: IL-BAXTER-2023BAX010294

PATIENT
  Sex: Male

DRUGS (7)
  1. CYCLOPHOSPHAMIDE [Suspect]
     Active Substance: CYCLOPHOSPHAMIDE
     Indication: Plasma cell myeloma
     Dosage: 3RD LINE (VCD)
     Route: 065
     Dates: start: 20220627, end: 20220725
  2. CYCLOPHOSPHAMIDE [Suspect]
     Active Substance: CYCLOPHOSPHAMIDE
     Dosage: 4TH LINE (VCD)
     Route: 065
     Dates: start: 20220825
  3. DEXAMETHASONE [Suspect]
     Active Substance: DEXAMETHASONE
     Indication: Plasma cell myeloma
     Dosage: 3RD LINE (VCD)
     Route: 065
     Dates: start: 20220627, end: 20220725
  4. DEXAMETHASONE [Suspect]
     Active Substance: DEXAMETHASONE
     Dosage: 4TH LINE (VCD)
     Route: 065
     Dates: start: 20220825
  5. VELCADE [Suspect]
     Active Substance: BORTEZOMIB
     Indication: Plasma cell myeloma
     Dosage: 3RD LINE (VCD)
     Route: 065
     Dates: start: 20220627, end: 20220725
  6. VELCADE [Suspect]
     Active Substance: BORTEZOMIB
     Dosage: 4TH LINE (VCD)
     Route: 065
     Dates: start: 20220825
  7. POMALIDOMIDE [Suspect]
     Active Substance: POMALIDOMIDE
     Indication: Plasma cell myeloma
     Dosage: 4TH LINE
     Route: 065
     Dates: start: 20220825

REACTIONS (5)
  - Bone lesion [Unknown]
  - Condition aggravated [Unknown]
  - Chronic kidney disease [Unknown]
  - Fracture [Unknown]
  - Therapy non-responder [Unknown]
